FAERS Safety Report 7164303-2 (Version None)
Quarter: 2010Q4

REPORT INFORMATION
  Report Type: 
  Country: None (occurrence: None)
  Receive Date: 20101215
  Receipt Date: 20101202
  Transmission Date: 20110411
  Serious: Yes (Other)
  Sender: FDA-Public Use
  Company Number: PHHY2010BR82220

PATIENT
  Age: 87 Year
  Sex: Male

DRUGS (1)
  1. FORASEQ [Suspect]

REACTIONS (2)
  - DRUG ADMINISTRATION ERROR [None]
  - MACULAR DEGENERATION [None]
